FAERS Safety Report 9534992 (Version 1)
Quarter: 2013Q3

REPORT INFORMATION
  Report Type: Spontaneous
  Country: CA (occurrence: CA)
  Receive Date: 20130918
  Receipt Date: 20130918
  Transmission Date: 20140515
  Serious: Yes (Other)
  Sender: FDA-Public Use
  Company Number: CA-TEVA-433091USA

PATIENT
  Sex: Female

DRUGS (1)
  1. RATIO-ACLAVULANATE [Suspect]
     Indication: INFECTION
     Dosage: 1750 MILLIGRAM DAILY;
     Route: 048
     Dates: start: 20130912, end: 20130914

REACTIONS (1)
  - Coeliac disease [Recovering/Resolving]
